FAERS Safety Report 8921492 (Version 2)
Quarter: 2012Q4

REPORT INFORMATION
  Report Type: 
  Country: US (occurrence: US)
  Receive Date: 20121121
  Receipt Date: 20121204
  Transmission Date: 20130627
  Serious: No
  Sender: FDA-Public Use
  Company Number: US-009507513-1211USA008075

PATIENT
  Sex: Female
  Weight: 61.22 kg

DRUGS (5)
  1. CLARITIN REDITABS [Suspect]
     Indication: SEASONAL ALLERGY
     Dosage: 10 mg, qpm
     Route: 048
     Dates: start: 201208, end: 201209
  2. CLARITIN REDITABS [Suspect]
     Indication: SNEEZING
  3. CLARITIN REDITABS [Suspect]
     Indication: RHINORRHOEA
  4. CLARITIN REDITABS [Suspect]
     Indication: LACRIMATION INCREASED
  5. SYNTHROID [Concomitant]
     Indication: HYPOTHYROIDISM
     Dosage: UNK, Unknown

REACTIONS (1)
  - Drug ineffective [Unknown]
